FAERS Safety Report 9022485 (Version 1)
Quarter: 2013Q1

REPORT INFORMATION
  Report Type: Spontaneous
  Country: JP (occurrence: JP)
  Receive Date: 20130118
  Receipt Date: 20130118
  Transmission Date: 20140127
  Serious: Yes (Other)
  Sender: FDA-Public Use
  Company Number: JP-ASTELLAS-2013JP000280

PATIENT
  Age: 83 Year
  Sex: Female

DRUGS (1)
  1. PROGRAF [Suspect]
     Indication: RHEUMATOID ARTHRITIS
     Dosage: 0.5 MG, UID/QD
     Route: 048
     Dates: start: 20121220

REACTIONS (2)
  - Intentional drug misuse [Unknown]
  - Intestinal obstruction [Unknown]
